FAERS Safety Report 8836696 (Version 1)
Quarter: 2012Q4

REPORT INFORMATION
  Report Type: Spontaneous
  Country: US (occurrence: None)
  Receive Date: 20121010
  Receipt Date: 20121010
  Transmission Date: 20130627
  Serious: Yes (Other)
  Sender: FDA-Public Use
  Company Number: VAL_00900_2012

PATIENT

DRUGS (3)
  1. METOPROLOL [Suspect]
     Indication: PRODUCT USED FOR UNKNOWN INDICATION
     Route: 064
  2. DIGOXIN [Suspect]
     Indication: PRODUCT USED FOR UNKNOWN INDICATION
     Route: 064
  3. NITROGLYCERIN [Suspect]
     Indication: PRODUCT USED FOR UNKNOWN INDICATION
     Route: 064

REACTIONS (12)
  - Maternal drugs affecting foetus [None]
  - Coloboma [None]
  - Alopecia [None]
  - Strabismus [None]
  - Encephalomalacia [None]
  - Strabismus [None]
  - Morning glory syndrome [None]
  - Strabismus [None]
  - Arachnoid cyst [None]
  - Cleft palate [None]
  - Eye movement disorder [None]
  - Altered visual depth perception [None]
